FAERS Safety Report 19729568 (Version 2)
Quarter: 2022Q4

REPORT INFORMATION
  Report Type: Other
  Country: CA (occurrence: CA)
  Receive Date: 20210820
  Receipt Date: 20221104
  Transmission Date: 20230112
  Serious: Yes (Other)
  Sender: FDA-Public Use
  Company Number: CA-002147023-NVSC2020CA353749

PATIENT
  Age: 35 Year
  Sex: Male

DRUGS (2)
  1. LUCENTIS [Suspect]
     Active Substance: RANIBIZUMAB
     Indication: Retinal vein occlusion
     Dosage: 0.5 MG
     Route: 047
     Dates: start: 20191210
  2. LUCENTIS [Suspect]
     Active Substance: RANIBIZUMAB
     Indication: Visual impairment
     Dosage: 0.05 ML
     Route: 047

REACTIONS (1)
  - Retinal thickening [Recovering/Resolving]

NARRATIVE: CASE EVENT DATE: 20191210
